FAERS Safety Report 5387679-5 (Version None)
Quarter: 2007Q3

REPORT INFORMATION
  Report Type: 
  Country: None (occurrence: None)
  Receive Date: 20070712
  Receipt Date: 20070712
  Transmission Date: 20080115
  Serious: Yes (Hospitalization)
  Sender: FDA-Public Use
  Company Number: None

PATIENT
  Sex: Male
  Weight: 87.73 kg

DRUGS (2)
  1. GEMCITABINE HCL [Suspect]
  2. ALIMTA [Suspect]

REACTIONS (15)
  - ANAEMIA [None]
  - BLOOD CREATINE PHOSPHOKINASE MB INCREASED [None]
  - CHILLS [None]
  - DISEASE PROGRESSION [None]
  - HALLUCINATION [None]
  - HYPERHIDROSIS [None]
  - HYPOTENSION [None]
  - HYPOVOLAEMIA [None]
  - LUNG INFILTRATION [None]
  - MESOTHELIOMA [None]
  - MUSCULOSKELETAL STIFFNESS [None]
  - PLATELET COUNT DECREASED [None]
  - PULMONARY EMBOLISM [None]
  - SINUS TACHYCARDIA [None]
  - TRANSFUSION REACTION [None]
